FAERS Safety Report 10337824 (Version 1)
Quarter: 2014Q3

REPORT INFORMATION
  Report Type: Spontaneous
  Country: GB (occurrence: None)
  Receive Date: 20140722
  Receipt Date: 20140722
  Transmission Date: 20150326
  Serious: Yes (Death, Hospitalization)
  Sender: FDA-Public Use
  Company Number: GB-H14001-14-00240

PATIENT
  Age: 64 Year
  Sex: Male

DRUGS (5)
  1. CO-AMOXICLAV [Suspect]
     Active Substance: AMOXICILLIN\CLAVULANIC ACID
     Indication: LOWER RESPIRATORY TRACT INFECTION
     Dosage: 3 DOSAGE FORMS (1 DOSAGE FORMS, 250/125 MG), ORAL
     Route: 048
     Dates: start: 20091116, end: 20091123
  2. CLARITHROMYCIN (CLARITHROMYCIN) [Concomitant]
     Active Substance: CLARITHROMYCIN
  3. OMEPRAZOLE (OMEPRAZOLE) [Concomitant]
     Active Substance: OMEPRAZOLE
  4. BENDROFLUMETHIAZIDE (BENDROFLUMETHIAZIDE) [Concomitant]
     Active Substance: BENDROFLUMETHIAZIDE
  5. PREDNISOLONE (PREDNISOLONE) [Concomitant]
     Active Substance: PREDNISOLONE

REACTIONS (12)
  - Decreased appetite [None]
  - Blood alkaline phosphatase increased [None]
  - Metabolic acidosis [None]
  - Disseminated intravascular coagulation [None]
  - Haemofiltration [None]
  - Middle insomnia [None]
  - Hepatomegaly [None]
  - Hyperkalaemia [None]
  - Cardiac arrest [None]
  - Liver injury [None]
  - Abdominal pain upper [None]
  - Alanine aminotransferase increased [None]

NARRATIVE: CASE EVENT DATE: 20091229
